FAERS Safety Report 9123356 (Version 1)
Quarter: 2013Q1

REPORT INFORMATION
  Report Type: Spontaneous
  Country: CH (occurrence: CH)
  Receive Date: 20130114
  Receipt Date: 20130114
  Transmission Date: 20140127
  Serious: Yes (Hospitalization)
  Sender: FDA-Public Use
  Company Number: CH-ROCHE-1178528

PATIENT
  Age: 66 Year
  Sex: Female

DRUGS (9)
  1. ROCEPHIN [Suspect]
     Indication: PNEUMONITIS
     Route: 040
     Dates: start: 20121118
  2. LEPONEX [Suspect]
     Indication: SCHIZOPHRENIA, PARANOID TYPE
     Route: 048
     Dates: start: 2012, end: 20121129
  3. CITALOPRAM HYDROBROMIDE [Suspect]
     Indication: ANXIETY DISORDER
     Dosage: DRUG REPORTED AS: SEROPRAM
     Route: 048
     Dates: end: 20121126
  4. STALEVO [Concomitant]
     Indication: PARKINSON^S DISEASE
     Route: 048
     Dates: start: 2010
  5. TEMESTA [Concomitant]
     Indication: ANXIETY DISORDER
     Route: 048
  6. SEROQUEL [Concomitant]
     Route: 065
     Dates: start: 20121123
  7. MADOPAR [Concomitant]
  8. ZOMETA [Concomitant]
     Route: 065
  9. VITAMIN D3 [Concomitant]

REACTIONS (2)
  - Epilepsy [Recovering/Resolving]
  - Spinal fracture [Recovered/Resolved]
